FAERS Safety Report 5468599-4 (Version None)
Quarter: 2007Q3

REPORT INFORMATION
  Report Type: 
  Country: None (occurrence: None)
  Receive Date: 20070926
  Receipt Date: 20070914
  Transmission Date: 20080115
  Serious: Yes (Other)
  Sender: FDA-Public Use
  Company Number: JP-ROCHE-492664

PATIENT
  Age: 8 Year
  Sex: Male
  Weight: 41 kg

DRUGS (5)
  1. TAMIFLU [Suspect]
     Dosage: FORM: DRY SYRUP.
     Route: 048
     Dates: start: 20070224, end: 20070224
  2. TAMIFLU [Suspect]
     Dosage: FORM: DRY SYRUP.
     Route: 048
     Dates: start: 20070225, end: 20070225
  3. KYORIN AP-2 [Concomitant]
     Route: 048
     Dates: start: 20070224, end: 20070228
  4. ASVERIN [Concomitant]
     Route: 048
     Dates: start: 20070224, end: 20070228
  5. METHY-F [Concomitant]
     Route: 048
     Dates: start: 20070224, end: 20070228

REACTIONS (1)
  - ABNORMAL BEHAVIOUR [None]
